FAERS Safety Report 11506780 (Version 1)
Quarter: 2015Q3

REPORT INFORMATION
  Report Type: Spontaneous
  Country: US (occurrence: US)
  Receive Date: 20150915
  Receipt Date: 20150915
  Transmission Date: 20151125
  Serious: No
  Sender: FDA-Public Use
  Company Number: US-ROCHE-786802

PATIENT
  Sex: Female

DRUGS (3)
  1. PEGASYS [Suspect]
     Active Substance: PEGINTERFERON ALFA-2A
     Indication: CHRONIC HEPATITIS C
     Route: 058
  2. RIBASPHERE RIBAPAK [Suspect]
     Active Substance: RIBAVIRIN
     Indication: CHRONIC HEPATITIS C
     Dosage: REPORTED: 1200MG DIVIDED DOSES
     Route: 048
  3. TEGRETOL [Concomitant]
     Active Substance: CARBAMAZEPINE
     Indication: BIPOLAR DISORDER
     Route: 065

REACTIONS (10)
  - Nightmare [Unknown]
  - Oral discomfort [Recovered/Resolved]
  - Dysgeusia [Unknown]
  - Breast tenderness [Unknown]
  - Injection site reaction [Unknown]
  - White blood cell count decreased [Unknown]
  - Toothache [Unknown]
  - Injection site bruising [Unknown]
  - Insomnia [Unknown]
  - Anaemia [Unknown]
